FAERS Safety Report 9307897 (Version 1)
Quarter: 2013Q2

REPORT INFORMATION
  Report Type: Spontaneous
  Country: IT (occurrence: IT)
  Receive Date: 20130524
  Receipt Date: 20130524
  Transmission Date: 20140414
  Serious: Yes (Hospitalization)
  Sender: FDA-Public Use
  Company Number: PHHY2013IT051904

PATIENT
  Sex: Female

DRUGS (7)
  1. VOLTAREN [Suspect]
     Indication: ARTHROPATHY
     Dosage: 1 DF, QD (DAILY)
     Route: 030
     Dates: start: 20120619, end: 20120619
  2. TRIATEC [Concomitant]
     Dosage: 5 MG, UNK
     Route: 048
  3. CARDIOASPIRIN [Concomitant]
  4. LANTUS [Concomitant]
  5. EUTIROX [Concomitant]
     Dosage: 150 UG, UNK
     Route: 048
  6. NOVORAPID [Concomitant]
  7. BISOPROLOL ACTAVIS [Concomitant]

REACTIONS (1)
  - Concussion [Recovering/Resolving]
